FAERS Safety Report 26208816 (Version 1)
Quarter: 2025Q4

REPORT INFORMATION
  Report Type: Spontaneous
  Country: US (occurrence: None)
  Receive Date: 20251228
  Receipt Date: 20251228
  Transmission Date: 20260117
  Serious: Yes (unspecified)
  Sender: FDA-CTU
  Company Number: None

PATIENT
  Age: 37 Year
  Sex: Female
  Weight: 67.5 kg

DRUGS (4)
  1. ERYTHROMYCIN [Suspect]
     Active Substance: ERYTHROMYCIN
     Indication: Corneal abrasion
     Dosage: FREQUENCY : 3 TIMES A DAY;
     Route: 047
     Dates: start: 20251220, end: 20251221
  2. OMEGA 3 [Concomitant]
     Active Substance: CAPSAICIN
  3. VITAMIN D [Concomitant]
     Active Substance: VITAMIN D NOS
  4. Organic Whole food multivitamin [Concomitant]

REACTIONS (5)
  - Application site pain [None]
  - Fall [None]
  - Ocular discomfort [None]
  - Therapy cessation [None]
  - Therapy change [None]

NARRATIVE: CASE EVENT DATE: 20251220
